FAERS Safety Report 18532873 (Version 1)
Quarter: 2020Q4

REPORT INFORMATION
  Report Type: Spontaneous
  Country: DE (occurrence: DE)
  Receive Date: 20201123
  Receipt Date: 20201123
  Transmission Date: 20210114
  Serious: Yes (Life-Threatening, Hospitalization, Other)
  Sender: FDA-Public Use
  Company Number: NVSC2020DE311011

PATIENT
  Age: 13 Month
  Sex: Male
  Weight: 10 kg

DRUGS (3)
  1. METOHEXAL [Suspect]
     Active Substance: METOPROLOL
     Indication: ACCIDENTAL EXPOSURE TO PRODUCT BY CHILD
     Dosage: UNK
     Route: 048
     Dates: start: 20190827, end: 20190827
  2. LEVODOPA [Suspect]
     Active Substance: LEVODOPA
     Indication: ACCIDENTAL EXPOSURE TO PRODUCT BY CHILD
     Dosage: UNK
     Route: 048
     Dates: start: 20190827, end: 20190827
  3. RESTEX [Suspect]
     Active Substance: BENSERAZIDE\LEVODOPA
     Indication: ACCIDENTAL EXPOSURE TO PRODUCT BY CHILD
     Dosage: UNK
     Route: 048
     Dates: start: 20190827, end: 20190827

REACTIONS (2)
  - Product administration error [Unknown]
  - Accidental exposure to product by child [Recovering/Resolving]

NARRATIVE: CASE EVENT DATE: 20190827
